FAERS Safety Report 10179108 (Version 2)
Quarter: 2014Q2

REPORT INFORMATION
  Report Type: Spontaneous
  Country: JP (occurrence: JP)
  Receive Date: 20140519
  Receipt Date: 20140603
  Transmission Date: 20141212
  Serious: Yes (Other)
  Sender: FDA-Public Use
  Company Number: PHHY2014JP058267

PATIENT
  Age: 85 Year
  Sex: Male

DRUGS (2)
  1. ULTIBRO BREEZHALER [Suspect]
     Indication: CHRONIC OBSTRUCTIVE PULMONARY DISEASE
     Dosage: UNK
     Route: 055
     Dates: start: 20140507, end: 20140510
  2. FIRSTCIN [Suspect]
     Dosage: UNK
     Route: 042
     Dates: start: 20140507, end: 20140510

REACTIONS (1)
  - Hypokalaemia [Recovered/Resolved]
